FAERS Safety Report 5547210-8 (Version None)
Quarter: 2007Q4

REPORT INFORMATION
  Report Type: 
  Country: None (occurrence: None)
  Receive Date: 20071211
  Receipt Date: 20071129
  Transmission Date: 20080405
  Serious: Yes (Hospitalization, Congenital Anomaly)
  Sender: FDA-Public Use
  Company Number: A0661737A

PATIENT
  Sex: Male

DRUGS (7)
  1. PAXIL CR [Suspect]
     Indication: DEPRESSION
     Dosage: 12.5MG TWICE PER DAY
     Dates: start: 20030606, end: 20030901
  2. PRENATAL VITAMINS [Concomitant]
     Dates: start: 20030801
  3. APAP W/ CODEINE [Concomitant]
     Dates: start: 20030801
  4. CEPHALEXIN [Concomitant]
     Dates: start: 20030801
  5. RANITIDINE HCL [Concomitant]
     Dates: start: 20030901
  6. ALBUTEROL [Concomitant]
     Dates: start: 20030901, end: 20040101
  7. ZITHROMAX [Concomitant]
     Dates: start: 20040101

REACTIONS (24)
  - AORTIC VALVE INCOMPETENCE [None]
  - CONGENITAL ANOMALY [None]
  - COUGH [None]
  - CYANOSIS [None]
  - DENTAL CARIES [None]
  - DRUG EXPOSURE DURING PREGNANCY [None]
  - DYSPNOEA [None]
  - FATIGUE [None]
  - GASTROOESOPHAGEAL REFLUX DISEASE [None]
  - HEART DISEASE CONGENITAL [None]
  - HEART VALVE INCOMPETENCE [None]
  - HYPERHIDROSIS [None]
  - HYPERTENSION [None]
  - LIMB TRAUMATIC AMPUTATION [None]
  - NECK INJURY [None]
  - NEONATAL DISORDER [None]
  - OEDEMA PERIPHERAL [None]
  - PULMONARY VALVE STENOSIS [None]
  - RESPIRATION ABNORMAL [None]
  - RESPIRATORY DEPTH INCREASED [None]
  - RHINORRHOEA [None]
  - TACHYPNOEA [None]
  - TOOTH INJURY [None]
  - TRANSPOSITION OF THE GREAT VESSELS [None]
